FAERS Safety Report 9714254 (Version 2)
Quarter: 2013Q4

REPORT INFORMATION
  Report Type: Spontaneous
  Country: US (occurrence: US)
  Receive Date: 20131126
  Receipt Date: 20131126
  Transmission Date: 20140711
  Serious: No
  Sender: FDA-Public Use
  Company Number: US-GILEAD-2008-0019404

PATIENT
  Age: 79 Year
  Sex: Female
  Weight: 93.44 kg

DRUGS (10)
  1. LETAIRIS [Suspect]
     Indication: PULMONARY ARTERIAL HYPERTENSION
     Route: 048
     Dates: start: 20081112, end: 20090108
  2. METOPROLOL [Concomitant]
  3. HYDROCHLOROTHIAZIDE [Concomitant]
  4. DIOVAN [Concomitant]
  5. JANUVIA [Concomitant]
  6. EVISTA [Concomitant]
  7. SINGULAIR [Concomitant]
  8. CELEBREX [Concomitant]
  9. ASA LOW DOSE [Concomitant]
  10. BLEPHAMIDE [Concomitant]

REACTIONS (2)
  - Nasal congestion [Not Recovered/Not Resolved]
  - Headache [Not Recovered/Not Resolved]
